FAERS Safety Report 24301552 (Version 4)
Quarter: 2025Q2

REPORT INFORMATION
  Report Type: Report from Study
  Country: US (occurrence: US)
  Receive Date: 20240910
  Receipt Date: 20250618
  Transmission Date: 20250716
  Serious: No
  Sender: NOVARTIS
  Company Number: US-002147023-NVSC2024US179476

PATIENT
  Age: 21 Year
  Sex: Female

DRUGS (3)
  1. ILARIS [Suspect]
     Active Substance: CANAKINUMAB
     Indication: Cryopyrin associated periodic syndrome
     Route: 065
  2. ILARIS [Suspect]
     Active Substance: CANAKINUMAB
     Route: 058
     Dates: start: 20200226
  3. ILARIS [Suspect]
     Active Substance: CANAKINUMAB
     Route: 065
     Dates: start: 20250607

REACTIONS (5)
  - Device issue [Unknown]
  - Accidental exposure to product [Unknown]
  - Device leakage [Unknown]
  - Incorrect dose administered by device [Unknown]
  - Incorrect product administration duration [Unknown]

NARRATIVE: CASE EVENT DATE: 20240905
